FAERS Safety Report 14689370 (Version 1)
Quarter: 2018Q1

REPORT INFORMATION
  Report Type: Spontaneous
  Country: JP (occurrence: JP)
  Receive Date: 20180328
  Receipt Date: 20180328
  Transmission Date: 20180509
  Serious: Yes (Death)
  Sender: FDA-Public Use
  Company Number: JP-PFIZER INC-2018127677

PATIENT
  Age: 85 Year
  Sex: Male

DRUGS (1)
  1. RAPALIMUS [Suspect]
     Active Substance: SIROLIMUS
     Indication: RENAL CANCER
     Dosage: 1 MG, WEEKLY
     Route: 048
     Dates: start: 20180110

REACTIONS (2)
  - Malignant neoplasm progression [Fatal]
  - Product use in unapproved indication [Unknown]
